FAERS Safety Report 5117402-0 (Version None)
Quarter: 2006Q3

REPORT INFORMATION
  Report Type: 
  Country: None (occurrence: None)
  Receive Date: 20060926
  Receipt Date: 20060911
  Transmission Date: 20061208
  Serious: Yes (Hospitalization, Other)
  Sender: FDA-Public Use
  Company Number: US200608003057

PATIENT
  Age: 56 Year
  Sex: Male

DRUGS (2)
  1. HUMALOG MIX 75/25 [Suspect]
     Indication: DIABETES MELLITUS
     Dosage: SEE IMAGE
  2. HUMALOG [Suspect]
     Indication: DIABETES MELLITUS
     Dosage: AS NEEDED

REACTIONS (5)
  - BLISTER [None]
  - CELLULITIS [None]
  - DIABETIC FOOT [None]
  - MYOCARDIAL INFARCTION [None]
  - PNEUMONIA [None]
